FAERS Safety Report 5832592-X (Version None)
Quarter: 2008Q3

REPORT INFORMATION
  Report Type: 
  Country: None (occurrence: None)
  Receive Date: 20080804
  Receipt Date: 20080723
  Transmission Date: 20090109
  Serious: Yes (Other)
  Sender: FDA-Public Use
  Company Number: PHHY2008JP15157

PATIENT

DRUGS (4)
  1. CYCLOSPORINE [Suspect]
     Indication: RENAL TRANSPLANT
  2. MYCOPHENOLATE MOFETIL [Suspect]
     Indication: RENAL TRANSPLANT
  3. METHYLPREDNISOLONE [Suspect]
     Indication: RENAL TRANSPLANT
  4. SIMULECT [Concomitant]
     Indication: RENAL TRANSPLANT
     Dosage: 20 MG, UNK

REACTIONS (9)
  - BLOOD BETA-D-GLUCAN INCREASED [None]
  - BONE MARROW FAILURE [None]
  - HYPOXIA [None]
  - NEPHROPATHY TOXIC [None]
  - PNEUMOCYSTIS JIROVECI PNEUMONIA [None]
  - PNEUMONIA BACTERIAL [None]
  - POLYOMAVIRUS-ASSOCIATED NEPHROPATHY [None]
  - PULMONARY ALVEOLAR HAEMORRHAGE [None]
  - RESPIRATORY TRACT HAEMORRHAGE [None]
